FAERS Safety Report 5426901-3 (Version None)
Quarter: 2007Q3

REPORT INFORMATION
  Report Type: 
  Country: None (occurrence: None)
  Receive Date: 20070827
  Receipt Date: 20070815
  Transmission Date: 20080115
  Serious: Yes (Hospitalization, Other)
  Sender: FDA-Public Use
  Company Number: US-PFIZER INC-2007068920

PATIENT
  Sex: Female
  Weight: 48.1 kg

DRUGS (6)
  1. LYRICA [Suspect]
     Indication: NEURALGIA
  2. LYRICA [Suspect]
     Indication: OSTEOPOROSIS
  3. LYRICA [Suspect]
     Indication: FIBROMYALGIA
  4. CLONAZEPAM [Concomitant]
  5. VALSARTAN [Concomitant]
  6. LEVOTHYROXINE SODIUM [Concomitant]

REACTIONS (5)
  - ABASIA [None]
  - AMNESIA [None]
  - FALL [None]
  - FATIGUE [None]
  - MUSCULAR WEAKNESS [None]
